FAERS Safety Report 20890089 (Version 2)
Quarter: 2022Q2

REPORT INFORMATION
  Report Type: Report from Study
  Country: HU (occurrence: HU)
  Receive Date: 20220530
  Receipt Date: 20220604
  Transmission Date: 20220720
  Serious: Yes (Death, Other)
  Sender: FDA-Public Use
  Company Number: HU-NOVARTISPH-NVSC2022HU123373

PATIENT
  Age: 67 Year
  Sex: Male
  Weight: 110 kg

DRUGS (13)
  1. ENTRESTO [Suspect]
     Active Substance: SACUBITRIL\VALSARTAN
     Indication: Product used for unknown indication
     Dosage: 100 MG (2X 1 TABLET OF THE 49/51 MG DOSE)
     Route: 065
     Dates: start: 20220222, end: 20220308
  2. ENTRESTO [Suspect]
     Active Substance: SACUBITRIL\VALSARTAN
     Dosage: 200 MG (2X 1 TABLET OF 97/103 MG DOSE)
     Route: 065
     Dates: start: 20220309, end: 20220413
  3. GLICLAZIDE [Concomitant]
     Active Substance: GLICLAZIDE
     Indication: Diabetes mellitus
     Dosage: 60 MG, QD
     Route: 048
     Dates: end: 20220413
  4. ROSUVASTATIN CALCIUM [Concomitant]
     Active Substance: ROSUVASTATIN CALCIUM
     Indication: Hyperlipidaemia
     Dosage: 10 MG, QD
     Route: 048
     Dates: end: 20220313
  5. SYNJARDY [Concomitant]
     Active Substance: EMPAGLIFLOZIN\METFORMIN HYDROCHLORIDE
     Indication: Diabetes mellitus
     Dosage: UNK, QD (2X 5/1000 MG )
     Route: 065
     Dates: end: 20220413
  6. SYNJARDY [Concomitant]
     Active Substance: EMPAGLIFLOZIN\METFORMIN HYDROCHLORIDE
     Indication: Cardiac failure
  7. NEBIVOLOL HYDROCHLORIDE [Concomitant]
     Active Substance: NEBIVOLOL HYDROCHLORIDE
     Indication: Cardiac failure
     Dosage: 2.5 MG, QD
     Route: 048
     Dates: end: 20220413
  8. MODUXIN [Concomitant]
     Indication: Myocardial ischaemia
     Dosage: 70 MG, QD (2X35 MG)
     Route: 048
     Dates: end: 20220413
  9. MODUXIN [Concomitant]
     Indication: Cardiac failure
  10. ALLOPURINOL [Concomitant]
     Active Substance: ALLOPURINOL
     Indication: Hyperuricaemia
     Dosage: 200 MG, QD (2X100 MG)
     Route: 048
  11. FUROSEMIDE [Concomitant]
     Active Substance: FUROSEMIDE
     Indication: Cardiac failure
     Dosage: 80 MG, QD (2X40 MG)
     Route: 048
     Dates: end: 20220413
  12. POTASSIUM [Concomitant]
     Active Substance: POTASSIUM
     Indication: Cardiac failure
     Dosage: 2000 MG, QD (2X1000 MG)
     Route: 048
     Dates: end: 20220413
  13. AMLODIPINE [Concomitant]
     Active Substance: AMLODIPINE BESYLATE
     Indication: Hypertension
     Dosage: 5 MG, QD
     Route: 048
     Dates: start: 20220222, end: 20220413

REACTIONS (8)
  - Acute left ventricular failure [Fatal]
  - Loss of consciousness [Fatal]
  - Cardiac arrest [Fatal]
  - Apnoea [Fatal]
  - Cerebrovascular disorder [Fatal]
  - Dyspnoea at rest [Unknown]
  - Pallor [Unknown]
  - Oedema peripheral [Unknown]

NARRATIVE: CASE EVENT DATE: 20220401
